FAERS Safety Report 7570116-X (Version None)
Quarter: 2011Q2

REPORT INFORMATION
  Report Type: 
  Country: None (occurrence: None)
  Receive Date: 20110624
  Receipt Date: 20110620
  Transmission Date: 20111010
  Serious: Yes (Other)
  Sender: FDA-Public Use
  Company Number: IL-BRISTOL-MYERS SQUIBB COMPANY-15843014

PATIENT
  Age: 54 Year
  Sex: Male

DRUGS (13)
  1. CYTARABINE [Suspect]
     Indication: B-CELL LYMPHOMA
  2. MESNA [Concomitant]
  3. SIMVASTATIN [Concomitant]
  4. SULFAMETHOXAZOLE AND TRIMETHOPRIM [Concomitant]
  5. LACTULOSE [Concomitant]
  6. CYTOXAN [Suspect]
     Indication: B-CELL LYMPHOMA
  7. DOXORUBICIN HCL [Suspect]
     Indication: B-CELL LYMPHOMA
  8. ASPIRIN [Concomitant]
  9. FOLIC ACID [Concomitant]
  10. RITUXIMAB [Suspect]
     Indication: B-CELL LYMPHOMA
  11. LEUCOVORIN CALCIUM [Concomitant]
  12. METHENAMINE TAB [Concomitant]
  13. TAMSULOSIN HCL [Concomitant]

REACTIONS (1)
  - NEURALGIA [None]
